FAERS Safety Report 10053596 (Version 1)
Quarter: 2014Q2

REPORT INFORMATION
  Report Type: Report from Study
  Country: US (occurrence: US)
  Receive Date: 20140402
  Receipt Date: 20140402
  Transmission Date: 20141212
  Serious: No
  Sender: FDA-Public Use
  Company Number: US-VERTEX PHARMACEUTICALS INC-2014-001677

PATIENT
  Age: 32 Year
  Sex: Male

DRUGS (1)
  1. VX-770 [Suspect]
     Indication: CYSTIC FIBROSIS
     Dosage: 150 MG, UNK
     Route: 048
     Dates: start: 20140303

REACTIONS (2)
  - Malaise [Recovered/Resolved]
  - Asthenia [Recovered/Resolved]
